FAERS Safety Report 17173799 (Version 1)
Quarter: 2019Q4

REPORT INFORMATION
  Report Type: Spontaneous
  Country: US (occurrence: US)
  Receive Date: 20191219
  Receipt Date: 20191219
  Transmission Date: 20200122
  Serious: No
  Sender: FDA-Public Use
  Company Number: US-PFIZER INC-2019546562

PATIENT
  Age: 59 Year
  Sex: Male

DRUGS (1)
  1. CAVERJECT [Suspect]
     Active Substance: ALPROSTADIL
     Indication: ERECTILE DYSFUNCTION
     Dosage: UNK, AS NEEDED [40MCG/0.4ML AS NEEDED BY INJECTION]

REACTIONS (2)
  - Drug ineffective [Unknown]
  - Injection site pain [Unknown]
